FAERS Safety Report 8541674-3 (Version None)
Quarter: 2012Q3

REPORT INFORMATION
  Report Type: 
  Country: None (occurrence: None)
  Receive Date: 20120726
  Receipt Date: 20120713
  Transmission Date: 20120928
  Serious: Yes (Hospitalization)
  Sender: FDA-Public Use
  Company Number: JP-ROCHE-1044211

PATIENT
  Sex: Female

DRUGS (20)
  1. ACTEMRA [Suspect]
     Route: 041
     Dates: start: 20091112, end: 20091210
  2. PREDNISOLONE [Concomitant]
     Indication: POLYMYOSITIS
     Route: 048
     Dates: start: 20081106, end: 20081211
  3. PREDNISOLONE [Concomitant]
     Route: 048
     Dates: start: 20090206, end: 20090402
  4. SUMILU [Concomitant]
     Indication: RHEUMATOID ARTHRITIS
     Dosage: SUMILU STICK
     Route: 061
  5. PREDNISOLONE [Concomitant]
     Route: 048
     Dates: start: 20081212, end: 20090205
  6. PREDNISOLONE [Concomitant]
     Route: 048
     Dates: start: 20090403, end: 20090101
  7. VOLTAREN [Concomitant]
     Indication: RHEUMATOID ARTHRITIS
     Route: 048
  8. CONIEL [Concomitant]
     Indication: HYPERTENSION
     Route: 048
  9. METHOTREXATE [Concomitant]
     Route: 048
     Dates: start: 20091210, end: 20100107
  10. RABEPRAZOLE SODIUM [Concomitant]
     Indication: PROPHYLAXIS
     Route: 048
  11. LIPITOR [Concomitant]
     Indication: HYPERLIPIDAEMIA
     Route: 048
  12. ACTEMRA [Suspect]
     Indication: RHEUMATOID ARTHRITIS
     Route: 041
     Dates: start: 20081106, end: 20090430
  13. METHOTREXATE [Concomitant]
     Indication: RHEUMATOID ARTHRITIS
     Route: 048
     Dates: end: 20091209
  14. METHOTREXATE [Concomitant]
     Route: 048
     Dates: start: 20100819, end: 20101105
  15. SULFAMETHOXAZOLE AND TRIMETHOPRIM [Concomitant]
     Indication: PROPHYLAXIS
     Route: 048
  16. KETOPROFEN [Concomitant]
     Indication: RHEUMATOID ARTHRITIS
     Route: 061
  17. FOLIC ACID [Concomitant]
     Indication: PROPHYLAXIS
     Route: 048
     Dates: end: 20100107
  18. LOXONIN [Concomitant]
     Indication: RHEUMATOID ARTHRITIS
     Route: 061
  19. PREDNISOLONE [Concomitant]
     Route: 048
     Dates: start: 20090101, end: 20101105
  20. PANVITAN [Concomitant]
     Indication: PROPHYLAXIS
     Route: 048

REACTIONS (3)
  - BREAST CANCER [None]
  - SKIN CANCER METASTATIC [None]
  - OSTEOPOROSIS [None]
